FAERS Safety Report 8729672 (Version 2)
Quarter: 2015Q2

REPORT INFORMATION
  Report Type: Report from Study
  Country: US (occurrence: US)
  Receive Date: 20120817
  Receipt Date: 20150626
  Transmission Date: 20150821
  Serious: Yes (Hospitalization)
  Sender: FDA-Public Use
  Company Number: US-ROCHE-1100985

PATIENT
  Sex: Male

DRUGS (19)
  1. VALIUM [Concomitant]
     Active Substance: DIAZEPAM
     Dosage: EVERY 2 HRS
     Route: 040
  2. MORPHINE [Concomitant]
     Active Substance: MORPHINE
     Route: 065
  3. LIDOCAINE. [Concomitant]
     Active Substance: LIDOCAINE
     Dosage: 1 MG/KG GTT, 2MG/MIN
     Route: 065
  4. LOPRESSOR [Concomitant]
     Active Substance: METOPROLOL TARTRATE
  5. SOLU-MEDROL [Concomitant]
     Active Substance: METHYLPREDNISOLONE SODIUM SUCCINATE
  6. ACTIVASE [Suspect]
     Active Substance: ALTEPLASE
     Indication: PLEURITIC PAIN
     Dosage: OVER 1-2 MINS
     Route: 040
  7. ACTIVASE [Suspect]
     Active Substance: ALTEPLASE
     Indication: ANGINA PECTORIS
     Dosage: 20 MG/HR FOR 2 HRS MAINTENANCE DOSE
     Route: 065
  8. NITROGLYCERIN. [Concomitant]
     Active Substance: NITROGLYCERIN
     Route: 042
  9. NITROGLYCERIN. [Concomitant]
     Active Substance: NITROGLYCERIN
     Route: 065
  10. XYLOCAINE [Concomitant]
     Active Substance: LIDOCAINE HYDROCHLORIDE
  11. HEPARIN [Concomitant]
     Active Substance: HEPARIN SODIUM
     Route: 040
  12. ATROPINE [Concomitant]
     Active Substance: ATROPINE
     Dosage: 0.5-1 MG
     Route: 065
  13. INDOCIN [Concomitant]
     Active Substance: INDOMETHACIN\INDOMETHACIN SODIUM
     Route: 065
  14. ACTIVASE [Suspect]
     Active Substance: ALTEPLASE
     Indication: ACUTE MYOCARDIAL INFARCTION
     Dosage: FIRST HOUR
     Route: 042
  15. VALIUM [Concomitant]
     Active Substance: DIAZEPAM
     Route: 065
  16. HEPARIN [Concomitant]
     Active Substance: HEPARIN SODIUM
     Route: 065
  17. NALOXONE [Concomitant]
     Active Substance: NALOXONE
  18. MORPHINE [Concomitant]
     Active Substance: MORPHINE
     Route: 040
  19. LIDOCAINE. [Concomitant]
     Active Substance: LIDOCAINE
     Dosage: 0.4 INJ 500 ML
     Route: 065

REACTIONS (2)
  - Chest pain [Unknown]
  - Blood bilirubin increased [Unknown]
